FAERS Safety Report 9547488 (Version 2)
Quarter: 2013Q4

REPORT INFORMATION
  Report Type: Spontaneous
  Country: US (occurrence: US)
  Receive Date: 20130924
  Receipt Date: 20131014
  Transmission Date: 20140711
  Serious: Yes (Other)
  Sender: FDA-Public Use
  Company Number: US-TEVA-434120USA

PATIENT
  Age: 32 Year
  Sex: Female
  Weight: 65.83 kg

DRUGS (3)
  1. PARAGARD 380A [Suspect]
     Indication: CONTRACEPTION
     Dates: start: 20130606, end: 20130815
  2. LEVOTHYROXINE [Concomitant]
  3. RETIN-A  CREAM [Concomitant]

REACTIONS (5)
  - Device dislocation [Recovered/Resolved]
  - Device expulsion [Recovered/Resolved]
  - Pain [Recovered/Resolved]
  - Micturition urgency [Recovered/Resolved]
  - Movement disorder [Recovered/Resolved]
